FAERS Safety Report 5156737-2 (Version None)
Quarter: 2006Q4

REPORT INFORMATION
  Report Type: 
  Country: None (occurrence: None)
  Receive Date: 20061115
  Receipt Date: 20061031
  Transmission Date: 20070319
  Serious: Yes (Other)
  Sender: FDA-Public Use
  Company Number: 15115

PATIENT
  Age: 75 Year
  Sex: Male

DRUGS (6)
  1. FLUOROURACIL [Suspect]
     Indication: GASTRIC CANCER
  2. FLUOROURACIL [Suspect]
     Indication: METASTASES TO LYMPH NODES
  3. LEUCOVORIN CALCIUM [Suspect]
     Indication: GASTRIC CANCER
  4. LEUCOVORIN CALCIUM [Suspect]
     Indication: METASTASES TO LYMPH NODES
  5. OXALIPLATIN [Suspect]
     Indication: GASTRIC CANCER
  6. OXALIPLATIN [Suspect]
     Indication: METASTASES TO LYMPH NODES

REACTIONS (2)
  - DIFFUSE ALVEOLAR DAMAGE [None]
  - INTERSTITIAL LUNG DISEASE [None]
